FAERS Safety Report 5313392-6 (Version None)
Quarter: 2007Q2

REPORT INFORMATION
  Report Type: 
  Country: None (occurrence: None)
  Receive Date: 20070427
  Receipt Date: 20070427
  Transmission Date: 20071010
  Serious: No
  Sender: FDA-Public Use
  Company Number: None

PATIENT
  Sex: Male
  Weight: 86.5 kg

DRUGS (1)
  1. PENTOSTATIN [Suspect]
     Dosage: 4 MG

REACTIONS (3)
  - GUN SHOT WOUND [None]
  - HEAD INJURY [None]
  - INTENTIONAL SELF-INJURY [None]
